FAERS Safety Report 6861418-0 (Version None)
Quarter: 2010Q3

REPORT INFORMATION
  Report Type: 
  Country: None (occurrence: None)
  Receive Date: 20100720
  Receipt Date: 20100712
  Transmission Date: 20110219
  Serious: Yes (Hospitalization, Other)
  Sender: FDA-Public Use
  Company Number: US-AMGEN-QUU421137

PATIENT
  Sex: Male
  Weight: 77.6 kg

DRUGS (2)
  1. ENBREL [Suspect]
     Indication: PSORIATIC ARTHROPATHY
     Route: 058
     Dates: start: 20080609
  2. ENBREL [Suspect]
     Indication: PSORIASIS

REACTIONS (16)
  - ACTINIC KERATOSIS [None]
  - ARTERIOSCLEROSIS CORONARY ARTERY [None]
  - ARTHRALGIA [None]
  - BLOOD TESTOSTERONE DECREASED [None]
  - CORONARY ARTERY STENOSIS [None]
  - FATIGUE [None]
  - GENERAL PHYSICAL CONDITION ABNORMAL [None]
  - INTERVERTEBRAL DISC DEGENERATION [None]
  - MALAISE [None]
  - OSTEOPOROSIS [None]
  - PSORIASIS [None]
  - RASH [None]
  - SINUS DISORDER [None]
  - SKIN LESION [None]
  - SKIN PAPILLOMA [None]
  - SLEEP DISORDER [None]
